FAERS Safety Report 10135975 (Version 1)
Quarter: 2014Q2

REPORT INFORMATION
  Report Type: Spontaneous
  Country: BR (occurrence: BR)
  Receive Date: 20140429
  Receipt Date: 20140429
  Transmission Date: 20141212
  Serious: Yes (Other)
  Sender: FDA-Public Use
  Company Number: BR-ROCHE-1391376

PATIENT
  Age: 65 Year
  Sex: Female

DRUGS (3)
  1. XOLAIR [Suspect]
     Indication: ASTHMA
     Route: 065
     Dates: start: 201303
  2. XOLAIR [Suspect]
     Route: 065
     Dates: start: 201401, end: 201401
  3. XOLAIR [Suspect]
     Route: 065
     Dates: start: 201402

REACTIONS (1)
  - Asthma [Unknown]
